FAERS Safety Report 13855581 (Version 1)
Quarter: 2017Q3

REPORT INFORMATION
  Report Type: Spontaneous
  Country: US (occurrence: US)
  Receive Date: 20170810
  Receipt Date: 20170810
  Transmission Date: 20171127
  Serious: No
  Sender: FDA-Public Use
  Company Number: US-VIFOR (INTERNATIONAL) INC.-VIT-2017-04933

PATIENT
  Sex: Male

DRUGS (17)
  1. ALPRAZOLAM. [Concomitant]
     Active Substance: ALPRAZOLAM
  2. FUROSEMIDE. [Concomitant]
     Active Substance: FUROSEMIDE
  3. SENNOSIDE A+B/DOCUSATE SODIUM [Concomitant]
  4. AMLODIPINE BESILATE [Concomitant]
     Active Substance: AMLODIPINE BESYLATE
  5. CARVEDILOL. [Concomitant]
     Active Substance: CARVEDILOL
  6. DOCUSATE CALCIUM. [Concomitant]
     Active Substance: DOCUSATE CALCIUM
  7. ZOLPIDEM TARTRATE. [Concomitant]
     Active Substance: ZOLPIDEM TARTRATE
  8. CLOPIDOGREL BISULFATE. [Concomitant]
     Active Substance: CLOPIDOGREL BISULFATE
  9. ISOSORBIDE MONONITRATE. [Concomitant]
     Active Substance: ISOSORBIDE MONONITRATE
  10. TRADJENTA [Concomitant]
     Active Substance: LINAGLIPTIN
  11. NITROSTAT [Concomitant]
     Active Substance: NITROGLYCERIN
  12. PRANDIN [Concomitant]
     Active Substance: REPAGLINIDE
  13. ACETYLSALICYLIC ACID [Concomitant]
     Active Substance: ASPIRIN
  14. TOCOPHEROL [Concomitant]
     Active Substance: TOCOPHEROL
  15. CRESTOR [Concomitant]
     Active Substance: ROSUVASTATIN CALCIUM
  16. VELTASSA [Suspect]
     Active Substance: PATIROMER
     Indication: HYPERKALAEMIA
     Route: 048
     Dates: start: 20160914
  17. LISINOPRIL. [Concomitant]
     Active Substance: LISINOPRIL

REACTIONS (2)
  - Constipation [Unknown]
  - Drug dose omission [Unknown]
